FAERS Safety Report 25342172 (Version 1)
Quarter: 2025Q2

REPORT INFORMATION
  Report Type: Spontaneous
  Country: US (occurrence: US)
  Receive Date: 20250521
  Receipt Date: 20250521
  Transmission Date: 20250717
  Serious: No
  Sender: CALLIDITAS THERAPEUTICS AB
  Company Number: US-Calliditas-2025CAL01263

PATIENT
  Age: 77 Year
  Sex: Female

DRUGS (19)
  1. TARPEYO [Suspect]
     Active Substance: BUDESONIDE
     Indication: IgA nephropathy
     Route: 048
     Dates: start: 20250226
  2. ACETAMINOPHEN [Concomitant]
     Active Substance: ACETAMINOPHEN
  3. ALPRAZOLAM [Concomitant]
     Active Substance: ALPRAZOLAM
  4. AMLODIPINE [Concomitant]
     Active Substance: AMLODIPINE BESYLATE
  5. BIOTIN [Concomitant]
     Active Substance: BIOTIN
  6. BUMETANIDE [Concomitant]
     Active Substance: BUMETANIDE
  7. COLESTIPOL [Concomitant]
     Active Substance: COLESTIPOL
  8. DOCUSATE [Concomitant]
     Active Substance: DOCUSATE
  9. FAMOTIDINE [Concomitant]
     Active Substance: FAMOTIDINE
  10. FERROUS SULFATE [Concomitant]
     Active Substance: FERROUS SULFATE
  11. FOLIC ACID [Concomitant]
     Active Substance: FOLIC ACID
  12. HYDRALAZINE [Concomitant]
     Active Substance: HYDRALAZINE HYDROCHLORIDE
  13. IMODIUM A-D [Concomitant]
     Active Substance: LOPERAMIDE HYDROCHLORIDE
  14. LOPERAMIDE [Concomitant]
     Active Substance: LOPERAMIDE
  15. METOPROLOL [Concomitant]
     Active Substance: METOPROLOL
  16. PROCRIT [Concomitant]
     Active Substance: ERYTHROPOIETIN
  17. SODIUM BICARBONATE [Concomitant]
     Active Substance: SODIUM BICARBONATE
  18. TRAMADOL [Concomitant]
     Active Substance: TRAMADOL
  19. VITAMIN B12 [Concomitant]
     Active Substance: CYANOCOBALAMIN

REACTIONS (6)
  - Fatigue [Unknown]
  - Asthenia [Unknown]
  - Decreased appetite [Unknown]
  - Poor quality sleep [Unknown]
  - Spondylitis [Unknown]
  - Glomerular filtration rate decreased [Unknown]
